FAERS Safety Report 7968622-9 (Version None)
Quarter: 2011Q4

REPORT INFORMATION
  Report Type: 
  Country: None (occurrence: None)
  Receive Date: 20111209
  Receipt Date: 20111130
  Transmission Date: 20120403
  Serious: Yes (Life-Threatening, Hospitalization)
  Sender: FDA-Public Use
  Company Number: US-GENZYME-FABR-1002227

PATIENT
  Sex: Male
  Weight: 70 kg

DRUGS (1)
  1. FABRAZYME [Suspect]
     Indication: FABRY'S DISEASE
     Dosage: 1 MG/KG, Q3W
     Route: 042
     Dates: start: 20060103

REACTIONS (4)
  - SEPSIS [None]
  - MULTI-ORGAN FAILURE [None]
  - CHOLECYSTITIS INFECTIVE [None]
  - ABDOMINAL PAIN [None]
